FAERS Safety Report 4318255-0 (Version None)
Quarter: 2004Q1

REPORT INFORMATION
  Report Type: 
  Country: None (occurrence: None)
  Receive Date: 20040315
  Receipt Date: 20040227
  Transmission Date: 20041129
  Serious: Yes (Hospitalization)
  Sender: FDA-Public Use
  Company Number: 190760

PATIENT
  Age: 58 Year
  Sex: Female
  Weight: 83.9154 kg

DRUGS (4)
  1. AVONEX [Suspect]
     Indication: MULTIPLE SCLEROSIS
     Dosage: 30 MCG QW IM
     Dates: start: 19960101, end: 20030801
  2. AVONEX [Suspect]
     Indication: MULTIPLE SCLEROSIS
     Dosage: 30 MCG QW IM
     Dates: start: 20030801, end: 20031101
  3. CELEBREX [Concomitant]
  4. VIOXX [Concomitant]

REACTIONS (1)
  - MIGRAINE [None]
